FAERS Safety Report 6865706-3 (Version None)
Quarter: 2010Q3

REPORT INFORMATION
  Report Type: 
  Country: None (occurrence: None)
  Receive Date: 20100721
  Receipt Date: 20080501
  Transmission Date: 20110219
  Serious: No
  Sender: FDA-Public Use
  Company Number: US-PFIZER INC-2008038651

PATIENT
  Sex: Female
  Weight: 68.181 kg

DRUGS (4)
  1. CHANTIX [Suspect]
     Indication: SMOKING CESSATION THERAPY
     Dosage: EVERY DAY
     Dates: start: 20080401
  2. ALL OTHER THERAPEUTIC PRODUCTS [Concomitant]
  3. CHOLESTEROL- AND TRIGLYCERIDE REDUCERS [Concomitant]
  4. IBUPROFEN [Concomitant]

REACTIONS (3)
  - AGGRESSION [None]
  - DEPRESSION [None]
  - DISSOCIATION [None]
